FAERS Safety Report 21807591 (Version 1)
Quarter: 2023Q1

REPORT INFORMATION
  Report Type: Spontaneous
  Country: US (occurrence: US)
  Receive Date: 20230103
  Receipt Date: 20230103
  Transmission Date: 20230417
  Serious: No
  Sender: FDA-Public Use
  Company Number: US-VIIV HEALTHCARE LIMITED-US2022AMR187872

PATIENT
  Age: 69 Year
  Sex: Male

DRUGS (2)
  1. RILPIVIRINE [Suspect]
     Active Substance: RILPIVIRINE
     Indication: HIV infection
     Dosage: UNK, 0MG/3ML, 600MG EVERY 2 MONTHS
     Route: 065
     Dates: start: 20220404
  2. CABOTEGRAVIR [Suspect]
     Active Substance: CABOTEGRAVIR
     Indication: HIV infection
     Dosage: UNK, 0MG/3ML, 600MG EVERY 2 MONTHS
     Route: 065
     Dates: start: 20220404

REACTIONS (1)
  - Viral load increased [Not Recovered/Not Resolved]
